FAERS Safety Report 21131954 (Version 1)
Quarter: 2022Q3

REPORT INFORMATION
  Report Type: Spontaneous
  Country: CA (occurrence: CA)
  Receive Date: 20220726
  Receipt Date: 20220726
  Transmission Date: 20221027
  Serious: Yes (Hospitalization, Other)
  Sender: FDA-Public Use
  Company Number: CA-SAMSUNG BIOEPIS-SB-2022-17898

PATIENT
  Age: 51 Year
  Sex: Female

DRUGS (1)
  1. INFLIXIMAB [Suspect]
     Active Substance: INFLIXIMAB
     Indication: Crohn^s disease
     Route: 042

REACTIONS (8)
  - Rotator cuff syndrome [Unknown]
  - Dental operation [Unknown]
  - Dry skin [Unknown]
  - Macule [Unknown]
  - Panic attack [Unknown]
  - Rash [Unknown]
  - Thyroid mass [Unknown]
  - Off label use [Unknown]
